FAERS Safety Report 22902341 (Version 3)
Quarter: 2023Q4

REPORT INFORMATION
  Report Type: Spontaneous
  Country: FR (occurrence: FR)
  Receive Date: 20230904
  Receipt Date: 20231009
  Transmission Date: 20240109
  Serious: Yes (Hospitalization, Other)
  Sender: FDA-Public Use
  Company Number: FR-SANDOZ-SDZ2023FR013906

PATIENT
  Age: 59 Year

DRUGS (5)
  1. TRAMADOL HYDROCHLORIDE [Suspect]
     Active Substance: TRAMADOL HYDROCHLORIDE
     Indication: Product used for unknown indication
     Dosage: 350 MILLIGRAM, 1/DAY
     Route: 048
  2. RISPERDAL [Suspect]
     Active Substance: RISPERIDONE
     Indication: Product used for unknown indication
     Dosage: 4 MILLIGRAM, 1/DAY
     Route: 048
     Dates: start: 2021
  3. RISPERDAL [Suspect]
     Active Substance: RISPERIDONE
     Dosage: 2 MILLIGRAM, 1/DAY?2 MG/IN 1 DAY PRESCRIBED 6 MONTHS AGO
     Route: 065
  4. BROMAZEPAM [Suspect]
     Active Substance: BROMAZEPAM
     Indication: Product used for unknown indication
     Dosage: 16 DOSAGE FORM, 1/DAY
     Route: 048
  5. BROMAZEPAM [Suspect]
     Active Substance: BROMAZEPAM
     Dosage: 3 DOSAGE FORM, 1/DAY
     Route: 048
     Dates: start: 1997

REACTIONS (2)
  - Extrapyramidal disorder [Recovering/Resolving]
  - Drug abuse [Unknown]
